FAERS Safety Report 7837778-0 (Version None)
Quarter: 2011Q4

REPORT INFORMATION
  Report Type: 
  Country: None (occurrence: None)
  Receive Date: 20111024
  Receipt Date: 20100723
  Transmission Date: 20120403
  Serious: No
  Sender: FDA-Public Use
  Company Number: US-BAYER-201029142NA

PATIENT
  Sex: Female
  Weight: 61.224 kg

DRUGS (8)
  1. ASPIRIN [Concomitant]
     Indication: ISCHAEMIC HEART DISEASE PROPHYLAXIS
  2. CIPROFLOXACIN [Suspect]
     Indication: PRODUCT USED FOR UNKNOWN INDICATION
  3. FLAGYL [Suspect]
  4. ZETIA [Concomitant]
     Indication: BLOOD CHOLESTEROL INCREASED
  5. MIRALAX [Concomitant]
     Indication: DIVERTICULITIS
     Dosage: UNK UNK, QD
     Dates: start: 20100602
  6. FOSAMAX [Concomitant]
     Indication: OSTEOPOROSIS PROPHYLAXIS
  7. GLUCOSAMINE W/CHONDROITIN SULFATE [Concomitant]
     Indication: PROPHYLAXIS
  8. CALTRATE + D [CALCIUM,VITAMIN D NOS] [Concomitant]
     Indication: PROPHYLAXIS

REACTIONS (2)
  - GLOSSITIS [None]
  - TONGUE COATED [None]
